FAERS Safety Report 25404757 (Version 1)
Quarter: 2025Q2

REPORT INFORMATION
  Report Type: Spontaneous
  Country: US (occurrence: US)
  Receive Date: 20250606
  Receipt Date: 20250606
  Transmission Date: 20250717
  Serious: Yes (Other)
  Sender: SANOFI AVENTIS
  Company Number: US-SA-2025SA160129

PATIENT
  Age: 4 Year
  Sex: Male
  Weight: 15.82 kg

DRUGS (10)
  1. DUPIXENT [Suspect]
     Active Substance: DUPILUMAB
     Indication: Dermatitis atopic
     Route: 058
     Dates: start: 20240711
  2. BENADRYL [Concomitant]
     Active Substance: DIPHENHYDRAMINE HYDROCHLORIDE
  3. BETAMETHASONE [Concomitant]
     Active Substance: BETAMETHASONE
  4. CETIRIZINE [Concomitant]
     Active Substance: CETIRIZINE HYDROCHLORIDE
  5. EUCRISA [Concomitant]
     Active Substance: CRISABOROLE
  6. FAMOTIDINE [Concomitant]
     Active Substance: FAMOTIDINE
  7. HYDROCORTISONE [Concomitant]
     Active Substance: HYDROCORTISONE
  8. KETOCONAZOLE [Concomitant]
     Active Substance: KETOCONAZOLE
  9. MUPIROCIN [Concomitant]
     Active Substance: MUPIROCIN
  10. TACROLIMUS [Concomitant]
     Active Substance: TACROLIMUS

REACTIONS (5)
  - Exophthalmos [Unknown]
  - Skin discolouration [Unknown]
  - Eye pruritus [Unknown]
  - Dry eye [Unknown]
  - Eye irritation [Unknown]
